FAERS Safety Report 14603057 (Version 1)
Quarter: 2018Q1

REPORT INFORMATION
  Report Type: Report from Study
  Country: None (occurrence: DE)
  Receive Date: 20180306
  Receipt Date: 20180306
  Transmission Date: 20180509
  Serious: Yes (Hospitalization)
  Sender: FDA-Public Use
  Company Number: DE-ABBVIE-18K-062-2272017-00

PATIENT
  Age: 70 Year
  Sex: Male

DRUGS (1)
  1. DUODOPA [Suspect]
     Active Substance: CARBIDOPA\LEVODOPA
     Indication: PARKINSON^S DISEASE
     Dosage: MD 10 ML, CRD 4,.1 ML/H; ED 2.5 ML
     Route: 050
     Dates: start: 20111012

REACTIONS (8)
  - Embedded device [Recovered/Resolved]
  - Urosepsis [Recovering/Resolving]
  - Parkinson^s disease [Unknown]
  - Pneumonia [Recovering/Resolving]
  - Device issue [Unknown]
  - Device dislocation [Unknown]
  - General physical health deterioration [Unknown]
  - Renal failure [Recovering/Resolving]

NARRATIVE: CASE EVENT DATE: 20180216
